FAERS Safety Report 9912805 (Version 1)
Quarter: 2014Q1

REPORT INFORMATION
  Report Type: Spontaneous
  Country: US (occurrence: None)
  Receive Date: 20140218
  Receipt Date: 20140218
  Transmission Date: 20141002
  Serious: Yes (Death)
  Sender: FDA-Public Use
  Company Number: None

PATIENT
  Age: 83 Year
  Sex: Female
  Weight: 61.24 kg

DRUGS (1)
  1. SUCRALFATE [Suspect]
     Route: 048

REACTIONS (2)
  - Oropharyngeal pain [None]
  - Activities of daily living impaired [None]
